FAERS Safety Report 6940113-3 (Version None)
Quarter: 2010Q3

REPORT INFORMATION
  Report Type: 
  Country: None (occurrence: None)
  Receive Date: 20100820
  Receipt Date: 20100809
  Transmission Date: 20110219
  Serious: Yes (Other)
  Sender: FDA-Public Use
  Company Number: JHP201000235

PATIENT
  Age: 5 Month

DRUGS (1)
  1. EPINEPHRINE [Suspect]
     Dosage: TOXIC DOSES, INTRAVENOUS
     Route: 042

REACTIONS (1)
  - ACCIDENTAL OVERDOSE [None]
